FAERS Safety Report 23283417 (Version 2)
Quarter: 2024Q1

REPORT INFORMATION
  Report Type: Report from Study
  Country: US (occurrence: US)
  Receive Date: 20231211
  Receipt Date: 20240328
  Transmission Date: 20240410
  Serious: No
  Sender: FDA-Public Use
  Company Number: US-ACADIA PHARMACEUTICALS INC.-ACA-2023-PIM-005261

PATIENT
  Age: 75 Year
  Sex: Female

DRUGS (20)
  1. NUPLAZID [Suspect]
     Active Substance: PIMAVANSERIN TARTRATE
     Indication: Parkinson^s disease psychosis
     Dosage: 34 MILLIGRAM, QD
     Route: 048
     Dates: start: 20231103
  2. NUPLAZID [Suspect]
     Active Substance: PIMAVANSERIN TARTRATE
     Indication: Hallucination
  3. NUPLAZID [Suspect]
     Active Substance: PIMAVANSERIN TARTRATE
     Indication: Delusion
  4. LOSARTAN [Concomitant]
     Active Substance: LOSARTAN
  5. CLONAZEPAM [Concomitant]
     Active Substance: CLONAZEPAM
  6. ALBUTEROL [Concomitant]
     Active Substance: ALBUTEROL
  7. ENTACAPONE [Concomitant]
     Active Substance: ENTACAPONE
  8. DOCUSATE [Concomitant]
     Active Substance: DOCUSATE
  9. AMLODIPINE [Concomitant]
     Active Substance: AMLODIPINE BESYLATE
  10. VITAMINS NOS [Concomitant]
     Active Substance: VITAMINS
  11. CYCLOBENZAPRINE [Concomitant]
     Active Substance: CYCLOBENZAPRINE
  12. ROPINIROLE [Concomitant]
     Active Substance: ROPINIROLE
  13. QUETIAPINE [Concomitant]
     Active Substance: QUETIAPINE
  14. ERGOCALCIFEROL [Concomitant]
     Active Substance: ERGOCALCIFEROL
  15. GABAPENTIN [Concomitant]
     Active Substance: GABAPENTIN
  16. IBUPROFEN [Concomitant]
     Active Substance: IBUPROFEN
  17. BUPROPION [Concomitant]
     Active Substance: BUPROPION
  18. TRAZODONE [Concomitant]
     Active Substance: TRAZODONE HYDROCHLORIDE
  19. NAPROXEN [Concomitant]
     Active Substance: NAPROXEN
  20. SINEMET [Concomitant]
     Active Substance: CARBIDOPA\LEVODOPA

REACTIONS (5)
  - Abdominal pain upper [Unknown]
  - Abdominal pain upper [Not Recovered/Not Resolved]
  - Abdominal discomfort [Not Recovered/Not Resolved]
  - Nausea [Not Recovered/Not Resolved]
  - Constipation [Not Recovered/Not Resolved]

NARRATIVE: CASE EVENT DATE: 20231108
